FAERS Safety Report 6244254-8 (Version None)
Quarter: 2009Q2

REPORT INFORMATION
  Report Type: 
  Country: None (occurrence: None)
  Receive Date: 20090625
  Receipt Date: 20081230
  Transmission Date: 20091009
  Serious: No
  Sender: FDA-Public Use
  Company Number: US-KINGPHARMUSA00001-K200801460

PATIENT
  Sex: Male

DRUGS (1)
  1. BICILLIN L-A [Suspect]
     Dosage: 600,000 UNITS, SINGLE

REACTIONS (2)
  - INCORRECT DOSE ADMINISTERED [None]
  - NO ADVERSE EVENT [None]
